FAERS Safety Report 8426228-1 (Version None)
Quarter: 2012Q2

REPORT INFORMATION
  Report Type: 
  Country: None (occurrence: None)
  Receive Date: 20120611
  Receipt Date: 20120606
  Transmission Date: 20120825
  Serious: No
  Sender: FDA-Public Use
  Company Number: US-TEVA-341807USA

PATIENT
  Sex: Male
  Weight: 70.37 kg

DRUGS (5)
  1. AZILECT [Suspect]
     Indication: PARKINSON'S DISEASE
     Dosage: 1 MILLIGRAM;
     Route: 048
     Dates: start: 20120401
  2. MINERAL TAB [Concomitant]
     Indication: PROSTATIC DISORDER
  3. AMANTADINE HCL [Concomitant]
     Indication: PARKINSON'S DISEASE
     Dosage: 300 MILLIGRAM;
     Route: 048
  4. ROPINIROLE [Concomitant]
     Indication: PARKINSON'S DISEASE
     Dosage: 1 MILLIGRAM;
     Route: 048
  5. SINEMET [Concomitant]
     Indication: PARKINSON'S DISEASE
     Dosage: 25 MG/100 MG
     Route: 048

REACTIONS (1)
  - ERECTILE DYSFUNCTION [None]
